FAERS Safety Report 7197326-8 (Version None)
Quarter: 2010Q4

REPORT INFORMATION
  Report Type: 
  Country: None (occurrence: None)
  Receive Date: 20101213
  Receipt Date: 20101208
  Transmission Date: 20110411
  Serious: Yes (Life-Threatening)
  Sender: FDA-Public Use
  Company Number: 2010SP063866

PATIENT
  Age: 26 Year
  Sex: Female

DRUGS (2)
  1. REFLEX (MIRTAZAPINE /01293201/) [Suspect]
     Indication: MAJOR DEPRESSION
     Dosage: 15 MG; QD; PO
     Route: 048
     Dates: start: 20101019, end: 20101026
  2. SODIUM AZULENE SULFONATE [Concomitant]

REACTIONS (4)
  - ANXIETY [None]
  - CONFUSIONAL STATE [None]
  - IRRITABILITY [None]
  - SUICIDAL IDEATION [None]
